FAERS Safety Report 15894339 (Version 1)
Quarter: 2019Q1

REPORT INFORMATION
  Report Type: Spontaneous
  Country: US (occurrence: US)
  Receive Date: 20190131
  Receipt Date: 20190131
  Transmission Date: 20190417
  Serious: Yes (Hospitalization)
  Sender: FDA-Public Use
  Company Number: US-GW PHARMA-201901USGW0167

PATIENT

DRUGS (3)
  1. EPIDIOLEX [Suspect]
     Active Substance: CANNABIDIOL
     Dosage: 9.91 MG/KG, 400 MILLIGRAM, BID
     Route: 048
     Dates: start: 20190122
  2. RISPERIDONE. [Concomitant]
     Active Substance: RISPERIDONE
     Indication: PSYCHOTIC SYMPTOM
     Dosage: UNK
     Route: 065
  3. EPIDIOLEX [Suspect]
     Active Substance: CANNABIDIOL
     Indication: LENNOX-GASTAUT SYNDROME
     Dosage: 4.96 MG/KG, 200 MILLIGRAM, BID
     Route: 048
     Dates: start: 20190114, end: 20190121

REACTIONS (2)
  - Psychotic symptom [Unknown]
  - Seizure [Unknown]

NARRATIVE: CASE EVENT DATE: 20190116
